FAERS Safety Report 9509435 (Version 1)
Quarter: 2013Q3

REPORT INFORMATION
  Report Type: Spontaneous
  Country: US (occurrence: US)
  Receive Date: 20130909
  Receipt Date: 20130909
  Transmission Date: 20140515
  Serious: No
  Sender: FDA-Public Use
  Company Number: US-BRISTOL-MYERS SQUIBB COMPANY-17286717

PATIENT
  Age: 17 Year
  Sex: Male

DRUGS (1)
  1. ABILIFY TABS 10 MG [Suspect]
     Dosage: DOSE WAS INCREASED FROM 2.5MG TO 5MG AND 10MG AFTER EVERY 2 DAYS?LAST DOSE:14JAN2013
     Dates: start: 20121227

REACTIONS (1)
  - Vision blurred [Unknown]
